FAERS Safety Report 14838268 (Version 1)
Quarter: 2018Q2

REPORT INFORMATION
  Report Type: Spontaneous
  Country: US (occurrence: US)
  Receive Date: 20180417
  Receipt Date: 20180417
  Transmission Date: 20180711
  Serious: Yes (Other)
  Sender: FDA-Public Use
  Company Number: None

PATIENT
  Age: 72 Year
  Sex: Female
  Weight: 76.05 kg

DRUGS (8)
  1. LATANOPROST. [Suspect]
     Active Substance: LATANOPROST
     Indication: GLAUCOMA
     Dosage: AT BEDTIME
     Route: 047
     Dates: start: 20180322, end: 20180326
  2. CITALOPRAM [Concomitant]
     Active Substance: CITALOPRAM HYDROBROMIDE
  3. TURMERIC [Concomitant]
     Active Substance: HERBALS\TURMERIC
  4. LEVOTHYROXIN [Concomitant]
     Active Substance: LEVOTHYROXINE
  5. MULTIVITAMIN [Concomitant]
     Active Substance: VITAMINS
  6. CALCIUM SUPPLEMENT [Concomitant]
     Active Substance: CALCIUM
  7. TIMOLOL. [Concomitant]
     Active Substance: TIMOLOL
  8. AREDS FORMULA [Concomitant]

REACTIONS (3)
  - Drug ineffective [None]
  - Photophobia [None]
  - Eye pain [None]

NARRATIVE: CASE EVENT DATE: 20180322
